FAERS Safety Report 7178937-2 (Version None)
Quarter: 2010Q4

REPORT INFORMATION
  Report Type: 
  Country: None (occurrence: None)
  Receive Date: 20101221
  Receipt Date: 20101206
  Transmission Date: 20110411
  Serious: Yes (Hospitalization)
  Sender: FDA-Public Use
  Company Number: PHBS2007BR20347

PATIENT
  Age: 69 Year
  Sex: Female

DRUGS (9)
  1. STALEVO 100 [Suspect]
     Indication: PARKINSON'S DISEASE
     Dosage: 100MG AND 2/50 MG DOSE
     Route: 048
     Dates: start: 20071016, end: 20071116
  2. STALEVO 100 [Suspect]
     Dosage: 50 MG
     Route: 048
  3. METFORMIN HCL [Concomitant]
     Dosage: 850 MG, TID
  4. GLIMEPIRIDE [Concomitant]
     Indication: DIABETES MELLITUS
     Dosage: 4 MG, QD
  5. REPAGLINIDE [Concomitant]
     Indication: DIABETES MELLITUS
     Dosage: 1 MG, QD
     Route: 048
  6. SIFROL [Concomitant]
     Dosage: 1MG/D
  7. NIAR [Concomitant]
     Indication: PARKINSON'S DISEASE
     Dosage: 5 MG, QD
     Route: 048
  8. ATORVASTATIN CALCIUM [Concomitant]
     Indication: HYPERCHOLESTEROLAEMIA
     Dosage: 10 MG, QD
     Route: 048
  9. FUROSEMIDE [Concomitant]
     Indication: OEDEMA
     Route: 048

REACTIONS (7)
  - BALANCE DISORDER [None]
  - DIARRHOEA [None]
  - DIZZINESS [None]
  - ERYTHEMA NODOSUM [None]
  - FATIGUE [None]
  - MALAISE [None]
  - NAUSEA [None]
